FAERS Safety Report 14329650 (Version 1)
Quarter: 2017Q4

REPORT INFORMATION
  Report Type: Spontaneous
  Country: US (occurrence: US)
  Receive Date: 20171227
  Receipt Date: 20171227
  Transmission Date: 20180321
  Serious: No
  Sender: FDA-Public Use
  Company Number: US-TEVA-2017-US-836647

PATIENT
  Sex: Male
  Weight: 100.7 kg

DRUGS (1)
  1. PRAVASTATIN. [Suspect]
     Active Substance: PRAVASTATIN
     Dates: start: 201606, end: 20171114

REACTIONS (2)
  - Drug ineffective [Unknown]
  - Pain [Unknown]
